FAERS Safety Report 8405970-2 (Version None)
Quarter: 2012Q2

REPORT INFORMATION
  Report Type: 
  Country: None (occurrence: None)
  Receive Date: 20120529
  Receipt Date: 20000703
  Transmission Date: 20120825
  Serious: Yes (Hospitalization, Other)
  Sender: FDA-Public Use
  Company Number: 02100-JPN-00-0048

PATIENT
  Age: 89 Year
  Sex: Female

DRUGS (2)
  1. PLETAL [Suspect]
     Dosage: NA, ORAL
     Route: 048
     Dates: start: 20000630, end: 20000630
  2. RISAMOHL (CISAPRIDE) TABLET, 2.5 MG [Suspect]
     Dosage: 0, SINGLE, ORAL
     Route: 048
     Dates: start: 20000630, end: 20000630

REACTIONS (6)
  - VENTRICULAR EXTRASYSTOLES [None]
  - VON WILLEBRAND'S FACTOR ACTIVITY INCREASED [None]
  - ELECTROCARDIOGRAM QT PROLONGED [None]
  - ANAEMIA [None]
  - BLOOD PRESSURE DECREASED [None]
  - ACCIDENTAL OVERDOSE [None]
